FAERS Safety Report 4311726-2 (Version None)
Quarter: 2004Q1

REPORT INFORMATION
  Report Type: 
  Country: None (occurrence: None)
  Receive Date: 20040304
  Receipt Date: 20040304
  Transmission Date: 20041129
  Serious: Yes (Hospitalization)
  Sender: FDA-Public Use
  Company Number: None

PATIENT
  Age: 66 Year
  Sex: Male
  Weight: 60.3284 kg

DRUGS (1)
  1. IRINOTECAN HAD NOT BEEN STARTED [Suspect]
     Indication: OESOPHAGEAL CARCINOMA
     Dosage: 100MG/M2 DI +DAT

REACTIONS (1)
  - NO ADVERSE DRUG EFFECT [None]
